FAERS Safety Report 10614735 (Version 2)
Quarter: 2014Q4

REPORT INFORMATION
  Report Type: Spontaneous
  Country: VN (occurrence: VN)
  Receive Date: 20141201
  Receipt Date: 20141210
  Transmission Date: 20150529
  Serious: Yes (Hospitalization)
  Sender: FDA-Public Use
  Company Number: VN-009507513-1411VNM012841

PATIENT
  Age: 80 Year
  Sex: Female

DRUGS (1)
  1. SINGULAIR [Suspect]
     Active Substance: MONTELUKAST SODIUM
     Dosage: 10 MG ONE TABLET, ONCE A DAY
     Route: 048
     Dates: start: 20140817, end: 2014

REACTIONS (1)
  - Hypertensive heart disease [Unknown]

NARRATIVE: CASE EVENT DATE: 2014
